FAERS Safety Report 11718562 (Version 2)
Quarter: 2015Q4

REPORT INFORMATION
  Report Type: Spontaneous
  Country: GB (occurrence: GB)
  Receive Date: 20151110
  Receipt Date: 20151113
  Transmission Date: 20160304
  Serious: Yes (Other)
  Sender: FDA-Public Use
  Company Number: GB-WATSON-2015-23827

PATIENT
  Age: 47 Year
  Sex: Male

DRUGS (2)
  1. DIAMORPHINE [Concomitant]
     Active Substance: DIACETYLMORPHINE
     Indication: DEPENDENCE
     Dosage: 400 MG, DAILY
     Route: 042
  2. SERTRALINE [Suspect]
     Active Substance: SERTRALINE HYDROCHLORIDE
     Indication: DEPRESSION
     Dosage: 100 MG, DAILY
     Route: 048
     Dates: start: 20151002, end: 20151012

REACTIONS (1)
  - Serotonin syndrome [Recovering/Resolving]

NARRATIVE: CASE EVENT DATE: 20151008
